FAERS Safety Report 5068737-1 (Version None)
Quarter: 2006Q3

REPORT INFORMATION
  Report Type: 
  Country: None (occurrence: None)
  Receive Date: 20060802
  Receipt Date: 20060310
  Transmission Date: 20061208
  Serious: No
  Sender: FDA-Public Use
  Company Number: US-BRISTOL-MYERS SQUIBB COMPANY-13311568

PATIENT
  Age: 71 Year
  Sex: Female
  Weight: 98 kg

DRUGS (10)
  1. COUMADIN [Suspect]
     Indication: CARDIAC PACEMAKER INSERTION
     Dates: start: 20050101
  2. NORVASC [Concomitant]
  3. DIOVAN [Concomitant]
  4. SYNTHROID [Concomitant]
  5. FUROSEMIDE [Concomitant]
  6. POTASSIUM CHLORIDE [Concomitant]
  7. PREMARIN [Concomitant]
  8. MIRALAX [Concomitant]
  9. CENTRUM [Concomitant]
  10. OS-CAL [Concomitant]

REACTIONS (2)
  - GINGIVAL PAIN [None]
  - TOOTHACHE [None]
